FAERS Safety Report 6542849-5 (Version None)
Quarter: 2010Q1

REPORT INFORMATION
  Report Type: 
  Country: None (occurrence: None)
  Receive Date: 20100120
  Receipt Date: 20100106
  Transmission Date: 20100710
  Serious: Yes (Hospitalization)
  Sender: FDA-Public Use
  Company Number: US-BIOGENIDEC-2009BI036964

PATIENT
  Age: 50 Year
  Sex: Female

DRUGS (2)
  1. TYSABRI [Suspect]
     Indication: MULTIPLE SCLEROSIS
     Route: 042
     Dates: start: 20090714, end: 20091101
  2. ZYPREXA [Concomitant]
     Dates: start: 20091001

REACTIONS (3)
  - DIVERTICULITIS [None]
  - HEPATIC LESION [None]
  - UTERINE LEIOMYOMA [None]
